FAERS Safety Report 24966479 (Version 2)
Quarter: 2025Q1

REPORT INFORMATION
  Report Type: Report from Study
  Country: TW (occurrence: TW)
  Receive Date: 20250213
  Receipt Date: 20250221
  Transmission Date: 20250408
  Serious: Yes (Death)
  Sender: ALNYLAM PHARMACEUTICALS
  Company Number: TW-ALNYLAM PHARMACEUTICALS, INC.-ALN-2025-001023

PATIENT

DRUGS (1)
  1. ONPATTRO [Suspect]
     Active Substance: PATISIRAN SODIUM
     Indication: Acquired ATTR amyloidosis
     Route: 042
     Dates: start: 20230807, end: 20230807

REACTIONS (1)
  - Death [Fatal]

NARRATIVE: CASE EVENT DATE: 20250130
